FAERS Safety Report 5458960-6 (Version None)
Quarter: 2007Q3

REPORT INFORMATION
  Report Type: 
  Country: None (occurrence: None)
  Receive Date: 20070919
  Receipt Date: 20070910
  Transmission Date: 20080115
  Serious: Yes (Hospitalization)
  Sender: FDA-Public Use
  Company Number: HQWYE173220APR05

PATIENT
  Sex: Male
  Weight: 82 kg

DRUGS (6)
  1. SIROLIMUS [Suspect]
     Indication: PROPHYLAXIS AGAINST TRANSPLANT REJECTION
     Route: 048
     Dates: start: 20050331
  2. ENALAPRIL MALEATE [Concomitant]
     Indication: HYPERTENSION
     Dosage: UNKNOWN
     Dates: start: 20021124
  3. FUROSEMIDE [Concomitant]
     Dosage: UNKNOWN
     Dates: start: 20021117
  4. ASPIRIN [Concomitant]
     Dosage: UNKNOWN
     Dates: start: 20050415
  5. HUMULIN R [Concomitant]
     Dosage: UNKNOWN
     Dates: start: 19980101
  6. LEVOTHYROXINE SODIUM [Concomitant]
     Dosage: UNKNOWN
     Dates: start: 20021127

REACTIONS (1)
  - LIVER TRANSPLANT REJECTION [None]
